FAERS Safety Report 6590876-4 (Version None)
Quarter: 2010Q1

REPORT INFORMATION
  Report Type: 
  Country: None (occurrence: None)
  Receive Date: 20100219
  Receipt Date: 20100208
  Transmission Date: 20100710
  Serious: Yes (Other)
  Sender: FDA-Public Use
  Company Number: FR-WYE-H12980910

PATIENT
  Sex: Male
  Weight: 99.5 kg

DRUGS (6)
  1. MOROCTOCOG ALFA [Suspect]
     Indication: FACTOR VIII DEFICIENCY
     Route: 042
     Dates: start: 20091028
  2. PARACETAMOL [Suspect]
     Indication: PAIN
     Dosage: ON DEMAND
  3. OMEPRAZOLE [Suspect]
     Dosage: UNKNOWN
     Dates: start: 20060515
  4. REFACTO [Suspect]
     Indication: FACTOR VIII DEFICIENCY
     Dates: start: 19991005, end: 20091001
  5. FELDENE [Suspect]
     Indication: ARTHRITIS
     Dosage: UNKNOWN
     Dates: start: 20060515
  6. FELDENE [Suspect]
     Indication: PAIN

REACTIONS (1)
  - FACTOR VIII INHIBITION [None]
